FAERS Safety Report 6858925-3 (Version None)
Quarter: 2010Q3

REPORT INFORMATION
  Report Type: 
  Country: None (occurrence: None)
  Receive Date: 20100719
  Receipt Date: 20080218
  Transmission Date: 20110219
  Serious: No
  Sender: FDA-Public Use
  Company Number: US-PFIZER INC-2008016715

PATIENT
  Sex: Male
  Weight: 109.1 kg

DRUGS (10)
  1. CHANTIX [Suspect]
     Dates: start: 20080211
  2. TRAZODONE HYDROCHLORIDE [Concomitant]
  3. LORATADINE [Concomitant]
  4. BUPROPION [Concomitant]
  5. AMLODIPINE [Concomitant]
  6. OMEPRAZOLE [Concomitant]
  7. GEMFIBROZIL [Concomitant]
  8. MULTI-VITAMINS [Concomitant]
  9. MORPHINE [Concomitant]
  10. VICODIN [Concomitant]

REACTIONS (5)
  - ABDOMINAL PAIN UPPER [None]
  - DEPRESSION [None]
  - INSOMNIA [None]
  - NIGHTMARE [None]
  - VOMITING [None]
